FAERS Safety Report 9370968 (Version 3)
Quarter: 2013Q3

REPORT INFORMATION
  Report Type: Spontaneous
  Country: US (occurrence: US)
  Receive Date: 20130627
  Receipt Date: 20130726
  Transmission Date: 20140515
  Serious: Yes (Other)
  Sender: FDA-Public Use
  Company Number: US-AMGEN-USASP2013044619

PATIENT
  Age: 36 Year
  Sex: Male
  Weight: 47.6 kg

DRUGS (13)
  1. PROCRIT [Suspect]
     Indication: ANAEMIA
     Dosage: 40000 UNIT, QWK
     Route: 058
     Dates: start: 20130505
  2. AMLODIPINE [Concomitant]
     Indication: HYPERTENSION
     Dosage: UNK
  3. ASA [Concomitant]
     Dosage: UNK
  4. CALCIUM CARBONATE [Concomitant]
     Dosage: UNK
  5. CLEOCIN                            /00166002/ [Concomitant]
     Dosage: UNK
  6. PEPCID                             /00706001/ [Concomitant]
     Dosage: UNK
  7. NIZORAL [Concomitant]
     Dosage: UNK
  8. IMODIUM [Concomitant]
     Dosage: UNK
  9. CELLCEPT                           /01275102/ [Concomitant]
     Dosage: UNK
  10. PREDNISONE [Concomitant]
     Dosage: UNK
  11. PROGRAF [Concomitant]
     Dosage: UNK
  12. PLEXION                            /00677901/ [Concomitant]
     Dosage: UNK
  13. VITAMIN D3 [Concomitant]
     Dosage: UNK

REACTIONS (4)
  - Transplant rejection [Unknown]
  - Therapeutic response decreased [Not Recovered/Not Resolved]
  - Anaemia [Not Recovered/Not Resolved]
  - Nasopharyngitis [Unknown]
